FAERS Safety Report 10960613 (Version 5)
Quarter: 2016Q2

REPORT INFORMATION
  Report Type: Spontaneous
  Country: US (occurrence: US)
  Receive Date: 20150327
  Receipt Date: 20160425
  Transmission Date: 20160815
  Serious: Yes (Other)
  Sender: FDA-Public Use
  Company Number: US-PFIZER INC-2015106403

PATIENT
  Age: 61 Year
  Sex: Female

DRUGS (33)
  1. COLESTID [Suspect]
     Active Substance: COLESTIPOL HYDROCHLORIDE
     Dosage: 5 G, 2X/DAY
     Route: 048
  2. VITAMIN D [Concomitant]
     Active Substance: CHOLECALCIFEROL
     Dosage: 50000 IU, WEEKLY
  3. ALBUTEROL SULFATE. [Concomitant]
     Active Substance: ALBUTEROL SULFATE
     Indication: WHEEZING
     Dosage: UNK, AS NEEDED (2.5 MG/3ML) (0.083% NEBULLZATION SOLUTION; 3 ML EVERY 2 HRS)
     Route: 055
  4. PROVENTIL HFA /00139501/ [Concomitant]
     Indication: DYSPNOEA
     Dosage: UNK UNK, AS NEEDED (2 PUFFS AS NEEDED INHALATION EVERY 4 HRS PRN
     Route: 055
     Dates: start: 20140113
  5. LEVOXYL [Concomitant]
     Active Substance: LEVOTHYROXINE SODIUM
     Dosage: 25 UG, 1X/DAY [EMPTY STOMACH IN THE MORNING]
     Route: 048
  6. OXYGEN. [Concomitant]
     Active Substance: OXYGEN
     Dosage: 2 L, (24/7)
  7. LISINOPRIL. [Concomitant]
     Active Substance: LISINOPRIL
     Indication: BLOOD PRESSURE ABNORMAL
     Dosage: 5 MG, DAILY (ONE EVERY MORNING)
     Route: 048
  8. ERYTHROMYCIN. [Concomitant]
     Active Substance: ERYTHROMYCIN
     Dosage: UNK, 3X/DAY (5 MG; 1/2 INCH RIBBON TO L EYE THREE TIMES A DAY)
     Route: 047
     Dates: start: 20130620
  9. PERFOROMIST [Concomitant]
     Active Substance: FORMOTEROL FUMARATE DIHYDRATE
     Indication: RESPIRATORY DISORDER
     Dosage: 20 ?G/2ML, 2X/DAY (ONE IN THE MORNING ONE AT NIGHT)
     Route: 055
     Dates: start: 20120416
  10. LISINOPRIL. [Concomitant]
     Active Substance: LISINOPRIL
     Dosage: 5 MG, 1X/DAY [ONCE A DAY]
     Route: 048
  11. PROLIA [Concomitant]
     Active Substance: DENOSUMAB
     Indication: OSTEOPOROSIS
     Dosage: 60 MG/ML, UNK (EVERY 6 MONTHS)
     Route: 058
     Dates: start: 20140313
  12. FLOVENT HFA [Concomitant]
     Active Substance: FLUTICASONE PROPIONATE
     Dosage: 2 DF, UNK (2 PUFFS INHALATION BID-TID)
     Route: 055
     Dates: start: 20110522
  13. POTASSIUM CHLORIDE. [Concomitant]
     Active Substance: POTASSIUM CHLORIDE
     Dosage: 20 MEQ, 2X/DAY
     Route: 048
     Dates: start: 20120511
  14. ALBUTEROL. [Concomitant]
     Active Substance: ALBUTEROL
     Indication: RESPIRATORY DISORDER
     Dosage: 0.083 %, AS NEEDED (EVERY 2 HOURS, MOSTLY 2.5 HRS)
  15. OXYGEN. [Concomitant]
     Active Substance: OXYGEN
     Dosage: UNK, DAILY (2 L/MIN AIR)
     Route: 045
  16. COUMADIN [Concomitant]
     Active Substance: WARFARIN SODIUM
     Dosage: 5 MG ON TUESDAY, THURSDAY, FRIDAY, SATURDAY AND SUNDAY, HALF TABLET (2.5 MG) ON MONDAY AND WEDNESDAY
     Route: 048
  17. LASIX [Concomitant]
     Active Substance: FUROSEMIDE
     Indication: FLUID RETENTION
     Dosage: UNK
  18. NITROGLYCERIN. [Concomitant]
     Active Substance: NITROGLYCERIN
     Indication: CHEST PAIN
     Dosage: 0.4 MG, AS NEEDED (1 TABLET UNDER THE TONGUE AND ALLOW TO DISSOLVE)
     Route: 060
  19. OXYGEN. [Concomitant]
     Active Substance: OXYGEN
     Dosage: UNK, DAILY (PORTABLE CONCENTRATOR OX 493.22 EQUIPMENT, SIG: US CONTINUOUSLY INHALATLON DALLY)
     Route: 055
     Dates: start: 20140317
  20. PERCOCET [Concomitant]
     Active Substance: ACETAMINOPHEN\OXYCODONE HYDROCHLORIDE
     Indication: PAIN
     Dosage: 5/325 MG,  (EVERY 8 HOURS)
     Route: 048
     Dates: start: 20121205
  21. SINGULAIR [Concomitant]
     Active Substance: MONTELUKAST SODIUM
     Indication: HYPERSENSITIVITY
     Dosage: 10 MG, 1X/DAY [IN THE EVENING]
     Route: 048
  22. TRIAMCINOLONE ACETATE [Concomitant]
     Active Substance: TRIAMCINOLONE ACETONIDE
     Indication: RASH
     Dosage: UNK, AS NEEDED (0.1 % CREAM, SIG: 1 APPLICATION TO AFFECTED AREA EXTERNALLY TWICE A DAY)
     Route: 061
     Dates: start: 20140220
  23. COLESTID [Suspect]
     Active Substance: COLESTIPOL HYDROCHLORIDE
     Indication: DIARRHOEA
     Dosage: (TAKING 6 PACKETS)
     Dates: start: 1987
  24. FLECTOR [Concomitant]
     Active Substance: DICLOFENAC EPOLAMINE
     Dosage: UNK, 2X/DAY (1.3 % PATCH; 1 PATCH TO SKIN TRANSDERMAL)
     Route: 062
     Dates: start: 20140925
  25. PREDNISONE. [Concomitant]
     Active Substance: PREDNISONE
     Dosage: 30 MG, DAILY
     Dates: start: 20130403
  26. TUDORZA PRESSAIR [Concomitant]
     Active Substance: ACLIDINIUM BROMIDE
     Dosage: 400 ?G, 2X/DAY (IN MORNING ONE AT NIGHT)
     Route: 055
     Dates: start: 20140331
  27. CHOLECALCIFEROL [Concomitant]
     Active Substance: CHOLECALCIFEROL
     Dosage: 50000 IU, WEEKLY
     Route: 048
     Dates: start: 20120827
  28. COLESTID [Suspect]
     Active Substance: COLESTIPOL HYDROCHLORIDE
     Dosage: UNK (2 PACKETS OF 5 GM, EVERY MORNING), 2X/DAY
  29. PREDNISONE. [Concomitant]
     Active Substance: PREDNISONE
     Dosage: 25 MG, DAILY
  30. ALBUTEROL. [Concomitant]
     Active Substance: ALBUTEROL
     Dosage: UNK ( AS PUFFS INHALAHER) EVERY 6 HRS
  31. PROVENTIL HFA /00139501/ [Concomitant]
     Indication: WHEEZING
  32. FLONASE [Concomitant]
     Active Substance: FLUTICASONE PROPIONATE
     Indication: NASAL DISORDER
     Dosage: 50 ?G, 2X/DAY (ONE IN MORNING AND ONE IN EVENING)
     Route: 045
  33. FUROSEMIDE. [Concomitant]
     Active Substance: FUROSEMIDE
     Indication: OEDEMA
     Dosage: 40 MG, AS NEEDED (1 TABLET ORALLY ONCE A DAY)
     Route: 048

REACTIONS (3)
  - Drug effect delayed [Unknown]
  - Intentional product use issue [Unknown]
  - Deafness unilateral [Not Recovered/Not Resolved]

NARRATIVE: CASE EVENT DATE: 1987
